FAERS Safety Report 18731865 (Version 1)
Quarter: 2021Q1

REPORT INFORMATION
  Report Type: Spontaneous
  Country: CA (occurrence: CA)
  Receive Date: 20210112
  Receipt Date: 20210112
  Transmission Date: 20210419
  Serious: Yes (Death)
  Sender: FDA-Public Use
  Company Number: CA-TEVA-2021-CA-1866482

PATIENT
  Age: 74 Year
  Sex: Female

DRUGS (18)
  1. IRON [Concomitant]
     Active Substance: IRON
  2. FOSAMAX [Concomitant]
     Active Substance: ALENDRONATE SODIUM
  3. PREDNISONE. [Concomitant]
     Active Substance: PREDNISONE
  4. DAPSONE. [Concomitant]
     Active Substance: DAPSONE
  5. MAGNESIUM [Concomitant]
     Active Substance: MAGNESIUM
  6. PARIET [Concomitant]
     Active Substance: RABEPRAZOLE SODIUM
  7. VITAMIN D [Concomitant]
     Active Substance: VITAMIN D NOS
  8. FUROSEMIDE. [Concomitant]
     Active Substance: FUROSEMIDE
  9. METFORMIN [Concomitant]
     Active Substance: METFORMIN HYDROCHLORIDE
  10. ALLOPURINOL. [Concomitant]
     Active Substance: ALLOPURINOL
  11. BISOPROLOL [Concomitant]
     Active Substance: BISOPROLOL
  12. BREO ELLIPTA [Concomitant]
     Active Substance: FLUTICASONE FUROATE\VILANTEROL TRIFENATATE
  13. UMECLIDINIUM BROMIDE [Concomitant]
     Active Substance: UMECLIDINIUM BROMIDE
  14. ASA [Concomitant]
     Active Substance: ASPIRIN
  15. EZETROL [Concomitant]
     Active Substance: EZETIMIBE
  16. TYLENOL EXTRA STRENGTH [Concomitant]
     Active Substance: ACETAMINOPHEN
  17. SILDENAFIL CITRATE. [Suspect]
     Active Substance: SILDENAFIL CITRATE
     Indication: PULMONARY ARTERIAL HYPERTENSION
     Route: 048
  18. SLOW K [Concomitant]
     Active Substance: POTASSIUM CHLORIDE

REACTIONS (10)
  - Dyspnoea [Fatal]
  - Headache [Fatal]
  - Death [Fatal]
  - Feeling hot [Fatal]
  - Influenza [Fatal]
  - Nausea [Fatal]
  - Asthenia [Fatal]
  - Oxygen saturation decreased [Fatal]
  - Malaise [Fatal]
  - Product dose omission in error [Fatal]
